FAERS Safety Report 8770899 (Version 9)
Quarter: 2014Q2

REPORT INFORMATION
  Report Type: Spontaneous
  Country: US (occurrence: US)
  Receive Date: 20120906
  Receipt Date: 20140513
  Transmission Date: 20141212
  Serious: Yes (Hospitalization, Other)
  Sender: FDA-Public Use
  Company Number: US-009507513-1205USA01763

PATIENT
  Sex: Female
  Weight: 62.59 kg

DRUGS (6)
  1. FOSAMAX [Suspect]
     Indication: OSTEOPENIA
     Dosage: 10 MG, UNK
     Route: 048
     Dates: end: 20120208
  2. FOSAMAX [Suspect]
     Indication: BONE DENSITY DECREASED
     Dosage: 70 MG, QW
     Route: 048
     Dates: start: 1995, end: 20120208
  3. FOSAMAX [Suspect]
     Indication: OSTEOPOROSIS
  4. ALENDRONATE SODIUM [Suspect]
     Dosage: 70 MG, UNK
     Route: 048
     Dates: start: 200810
  5. ALENDRONATE SODIUM [Suspect]
     Dosage: 70 MG, UNK
     Route: 048
     Dates: start: 200902, end: 200907
  6. ALENDRONATE SODIUM [Suspect]
     Dosage: 70 MG, QW
     Route: 048
     Dates: start: 200908, end: 20120209

REACTIONS (31)
  - Femur fracture [Recovered/Resolved]
  - Open reduction of fracture [Unknown]
  - Fall [Unknown]
  - Joint dislocation [Unknown]
  - Low turnover osteopathy [Unknown]
  - Hypercholesterolaemia [Unknown]
  - Hypertension [Unknown]
  - Fracture delayed union [Unknown]
  - Cellulitis [Unknown]
  - Carotid artery stenosis [Unknown]
  - Fibrocystic breast disease [Unknown]
  - Osteoporosis [Unknown]
  - Muscle tightness [Unknown]
  - Muscle tightness [Recovered/Resolved]
  - Hypothyroidism [Unknown]
  - Atrial fibrillation [Unknown]
  - Neuroma [Unknown]
  - Foot operation [Unknown]
  - Joint dislocation reduction [Unknown]
  - Cataract [Unknown]
  - Cataract operation [Unknown]
  - Palpitations [Unknown]
  - Renal impairment [Unknown]
  - Increased tendency to bruise [Unknown]
  - Haemorrhagic diathesis [Unknown]
  - Arthritis [Unknown]
  - Hyperthyroidism [Unknown]
  - Cataract [Unknown]
  - Cataract operation [Unknown]
  - Pain in extremity [Unknown]
  - Headache [Unknown]
